FAERS Safety Report 13680721 (Version 2)
Quarter: 2017Q3

REPORT INFORMATION
  Report Type: Spontaneous
  Country: IT (occurrence: IT)
  Receive Date: 20170623
  Receipt Date: 20170710
  Transmission Date: 20171127
  Serious: Yes (Other)
  Sender: FDA-Public Use
  Company Number: IT-ROCHE-1953314

PATIENT
  Age: 49 Year
  Sex: Female

DRUGS (1)
  1. ROACTEMRA [Suspect]
     Active Substance: TOCILIZUMAB
     Indication: RHEUMATOID ARTHRITIS
     Route: 058

REACTIONS (5)
  - Hyperaemia [Unknown]
  - Injection site rash [Unknown]
  - Pruritus [Unknown]
  - Swelling [Unknown]
  - Drug eruption [Unknown]

NARRATIVE: CASE EVENT DATE: 20170614
